FAERS Safety Report 8436796-1 (Version None)
Quarter: 2012Q2

REPORT INFORMATION
  Report Type: 
  Country: None (occurrence: None)
  Receive Date: 20120614
  Receipt Date: 20120606
  Transmission Date: 20120825
  Serious: Yes (Other)
  Sender: FDA-Public Use
  Company Number: US-JNJFOC-20120604172

PATIENT
  Sex: Female

DRUGS (7)
  1. PREDNISONE TAB [Concomitant]
     Indication: TEMPORAL ARTERITIS
     Route: 065
     Dates: start: 20060101
  2. VITAMINS NOS [Concomitant]
     Indication: VITAMIN SUPPLEMENTATION
     Route: 065
  3. PROLIA [Concomitant]
     Indication: OSTEOPOROSIS
     Route: 065
     Dates: start: 20120228
  4. EXTRA STRENGTH TYLENOL [Suspect]
     Route: 048
  5. PREDNISONE TAB [Concomitant]
     Route: 065
     Dates: start: 20060101
  6. EXTRA STRENGTH TYLENOL [Suspect]
     Indication: TEMPORAL ARTERITIS
     Route: 048
  7. FOSAMAX [Concomitant]
     Indication: OSTEOPOROSIS
     Route: 065
     Dates: start: 20010101

REACTIONS (3)
  - UTERINE MASS [None]
  - ABDOMINAL PAIN UPPER [None]
  - INTENTIONAL DRUG MISUSE [None]
